FAERS Safety Report 18294499 (Version 1)
Quarter: 2020Q3

REPORT INFORMATION
  Report Type: Spontaneous
  Country: US (occurrence: US)
  Receive Date: 20200922
  Receipt Date: 20200922
  Transmission Date: 20201103
  Serious: Yes (Hospitalization)
  Sender: FDA-Public Use
  Company Number: None

PATIENT
  Age: 62 Year
  Sex: Female

DRUGS (19)
  1. DOXYCYC MONO [Concomitant]
     Active Substance: DOXYCYCLINE
  2. CHLORHEX GLU [Concomitant]
  3. CLINDAMYCIN. [Concomitant]
     Active Substance: CLINDAMYCIN
  4. OMEPRAZOLE. [Concomitant]
     Active Substance: OMEPRAZOLE
  5. APAP/CODEINE [Concomitant]
     Active Substance: ACETAMINOPHEN\CODEINE PHOSPHATE
  6. ATORVASTATIN [Concomitant]
     Active Substance: ATORVASTATIN
  7. CIPROFLOXACIN. [Concomitant]
     Active Substance: CIPROFLOXACIN
  8. IBUPROFEN. [Concomitant]
     Active Substance: IBUPROFEN
  9. PREDNISONE. [Concomitant]
     Active Substance: PREDNISONE
  10. COSENTYX [Suspect]
     Active Substance: SECUKINUMAB
     Indication: PSORIATIC ARTHROPATHY
     Dosage: 2 SYR (300MG) Q4W (Q3OD) SQ
     Route: 058
     Dates: start: 20180404
  11. LISINOPRIL AND HYDROCHLOROTHIAZIDE [Concomitant]
     Active Substance: HYDROCHLOROTHIAZIDE\LISINOPRIL
  12. GABAPENTIN. [Concomitant]
     Active Substance: GABAPENTIN
  13. TRAVOPROST. [Concomitant]
     Active Substance: TRAVOPROST
  14. ALPRAZOLAM. [Concomitant]
     Active Substance: ALPRAZOLAM
  15. CEPHALEXIN. [Concomitant]
     Active Substance: CEPHALEXIN
  16. DULOXETINE. [Concomitant]
     Active Substance: DULOXETINE
  17. METHOCARBAM [Concomitant]
     Active Substance: METHOCARBAMOL
  18. TRAZODONE [Concomitant]
     Active Substance: TRAZODONE HYDROCHLORIDE
  19. ZENPEP [Concomitant]
     Active Substance: PANCRELIPASE AMYLASE\PANCRELIPASE LIPASE\PANCRELIPASE PROTEASE

REACTIONS (4)
  - Fall [None]
  - Neck surgery [None]
  - Tibia fracture [None]
  - Arthralgia [None]

NARRATIVE: CASE EVENT DATE: 20200909
